FAERS Safety Report 25849229 (Version 1)
Quarter: 2025Q3

REPORT INFORMATION
  Report Type: Spontaneous
  Country: US (occurrence: US)
  Receive Date: 20250925
  Receipt Date: 20250925
  Transmission Date: 20251020
  Serious: No
  Sender: AMPHASTAR
  Company Number: US-Amphastar Pharmaceuticals, Inc.-2185329

PATIENT
  Age: 61 Year
  Sex: Female

DRUGS (1)
  1. BAQSIMI [Suspect]
     Active Substance: GLUCAGON
     Indication: Blood glucose decreased
     Dates: start: 20250511, end: 20250511

REACTIONS (3)
  - Nasal discomfort [Recovered/Resolved]
  - Administration site reaction [Unknown]
  - Headache [Unknown]

NARRATIVE: CASE EVENT DATE: 20250511
